FAERS Safety Report 10073169 (Version 2)
Quarter: 2014Q2

REPORT INFORMATION
  Report Type: Report from Study
  Country: AU (occurrence: AU)
  Receive Date: 20140411
  Receipt Date: 20140507
  Transmission Date: 20141212
  Serious: Yes (Death, Other)
  Sender: FDA-Public Use
  Company Number: PHHY2014AU044461

PATIENT
  Sex: Male

DRUGS (3)
  1. ACLASTA [Suspect]
     Dosage: 5 MG, UNK
     Route: 042
     Dates: start: 20120224
  2. ACLASTA [Suspect]
     Dosage: 5 MG, UNK
     Route: 042
     Dates: start: 20130315
  3. ANTIARRHYTHMIC AGENTS [Concomitant]
     Dosage: UNK UKN, UNK
     Route: 048

REACTIONS (3)
  - Cardiac failure congestive [Fatal]
  - Loss of consciousness [Unknown]
  - Circulatory collapse [Unknown]
